FAERS Safety Report 6631887-X (Version None)
Quarter: 2010Q1

REPORT INFORMATION
  Report Type: 
  Country: None (occurrence: None)
  Receive Date: 20100312
  Receipt Date: 20090603
  Transmission Date: 20100710
  Serious: No
  Sender: FDA-Public Use
  Company Number: US-BIOGENIDEC-2009BI016776

PATIENT
  Age: 51 Year
  Sex: Male

DRUGS (3)
  1. AVONEX [Suspect]
     Indication: MULTIPLE SCLEROSIS
     Route: 030
     Dates: start: 20090401, end: 20090501
  2. AVONEX [Suspect]
     Route: 030
     Dates: start: 20090501, end: 20090501
  3. AVONEX [Suspect]
     Route: 030
     Dates: start: 20090501

REACTIONS (1)
  - BONE DENSITY DECREASED [None]
